FAERS Safety Report 25148623 (Version 1)
Quarter: 2025Q2

REPORT INFORMATION
  Report Type: Spontaneous
  Country: US (occurrence: US)
  Receive Date: 20250402
  Receipt Date: 20250402
  Transmission Date: 20250717
  Serious: Yes (Life-Threatening, Hospitalization, Other)
  Sender: GLAND PHARMA
  Company Number: US-GLANDPHARMA-US-2025GLNLIT00884

PATIENT
  Age: 31 Year
  Sex: Female

DRUGS (1)
  1. THIOTEPA [Suspect]
     Active Substance: THIOTEPA
     Indication: Central nervous system lymphoma
     Route: 065

REACTIONS (2)
  - Toxic erythema of chemotherapy [Unknown]
  - Product use in unapproved indication [Unknown]
